FAERS Safety Report 6137508-7 (Version None)
Quarter: 2009Q1

REPORT INFORMATION
  Report Type: 
  Country: None (occurrence: None)
  Receive Date: 20090326
  Receipt Date: 20090311
  Transmission Date: 20090719
  Serious: Yes (Hospitalization)
  Sender: FDA-Public Use
  Company Number: IDA-00187

PATIENT
  Age: 23 Year
  Sex: Male

DRUGS (2)
  1. PROPRANOLOL [Suspect]
     Indication: WEIGHT CONTROL
     Dosage: DAILY DOSE: 40 MG BID;
  2. LIOTHYRONINE SODIUM [Suspect]
     Indication: WEIGHT CONTROL
     Dosage: DAILY DOSE: DOSE TEXT: 64 MU G;

REACTIONS (3)
  - HYPERKALAEMIA [None]
  - SYSTOLIC HYPERTENSION [None]
  - THYROTOXIC PERIODIC PARALYSIS [None]
